FAERS Safety Report 4342755-0 (Version None)
Quarter: 2004Q2

REPORT INFORMATION
  Report Type: 
  Country: None (occurrence: None)
  Receive Date: 20040416
  Receipt Date: 20040531
  Transmission Date: 20050107
  Serious: Yes (Hospitalization)
  Sender: FDA-Public Use
  Company Number: E126624

PATIENT
  Age: 72 Year
  Sex: Male

DRUGS (7)
  1. OXALIPLATIN [Suspect]
     Indication: OESOPHAGEAL CANCER METASTATIC
     Dosage: 85 MG/M2 Q2W,   INTRAVENOUS NOS
     Route: 042
     Dates: start: 20010516, end: 20010516
  2. FLUOROURACIL [Suspect]
     Dosage: 400 MG M2 DAY IV BOLUS THEN 600 MG/M2  DAY IV CONTINUOUS INFUSION Q2W, INTRAVENOUS NOS
     Route: 042
     Dates: start: 20010516, end: 20010517
  3. (LEUCOVORIN) - SOLUTION - UNIT DOSE : UNKNOWN [Suspect]
     Dosage: INTRAVENOUS NOS
     Route: 042
     Dates: start: 20010516, end: 20010517
  4. FLUCONAZOLE [Concomitant]
  5. ZOFRAN [Concomitant]
  6. SOLU-MEDROL [Concomitant]
  7. OMEPRAZOLE [Concomitant]

REACTIONS (7)
  - BLOOD CALCIUM DECREASED [None]
  - BLOOD FIBRINOGEN INCREASED [None]
  - HAEMATOCRIT DECREASED [None]
  - LABORATORY TEST ABNORMAL [None]
  - LEUKOPENIA [None]
  - OESOPHAGITIS [None]
  - WEIGHT DECREASED [None]
